FAERS Safety Report 9161963 (Version 2)
Quarter: 2013Q2

REPORT INFORMATION
  Report Type: Spontaneous
  Country: US (occurrence: US)
  Receive Date: 20130314
  Receipt Date: 20130401
  Transmission Date: 20140414
  Serious: No
  Sender: FDA-Public Use
  Company Number: US-009507513-1303USA006059

PATIENT
  Age: 64 Year
  Sex: Male

DRUGS (13)
  1. VICTRELIS [Suspect]
     Indication: HEPATITIS C
     Dosage: 800 MG, THREE TIMES DAILY
     Route: 048
     Dates: start: 20130124
  2. RIBASPHERE [Suspect]
     Dosage: UNK
  3. PEGASYS [Suspect]
     Dosage: UNK
  4. RIBAPAK [Suspect]
  5. CILOSTAZOL [Concomitant]
  6. NORVASC [Concomitant]
  7. ENALAPRIL MALEATE [Concomitant]
  8. METOPROLOL [Concomitant]
  9. GLYBURIDE [Concomitant]
  10. OMEPRAZOLE [Concomitant]
  11. PYRIDOXINE [Concomitant]
  12. FLOMAX (MORNIFLUMATE) [Concomitant]
  13. ASPIRIN [Concomitant]

REACTIONS (3)
  - Ear pruritus [Not Recovered/Not Resolved]
  - Pruritus [Unknown]
  - Bladder disorder [Not Recovered/Not Resolved]
